FAERS Safety Report 8812608 (Version 2)
Quarter: 2012Q4

REPORT INFORMATION
  Report Type: 
  Country: HU (occurrence: HU)
  Receive Date: 20120927
  Receipt Date: 20121002
  Transmission Date: 20130627
  Serious: Yes (Other)
  Sender: FDA-Public Use
  Company Number: HU-PFIZER INC-2012230906

PATIENT
  Age: 53 Year
  Sex: Female
  Weight: 82 kg

DRUGS (11)
  1. LYRICA [Suspect]
     Indication: NEURALGIA
     Dosage: 75 mg, 1x/day
     Dates: start: 20120213, end: 20120213
  2. LUCETAM [Concomitant]
     Dosage: UNK
     Dates: start: 2001
  3. CARVEDILOL [Concomitant]
     Dosage: started 7 -8 years ago
  4. INDAPAMIDE [Concomitant]
     Dosage: started 7 - 8 years ago
  5. ASASANTIN [Concomitant]
     Dosage: started 3 or 4 years ago, stopped  about a good half a year
  6. VITAMIN B6 [Concomitant]
     Dosage: started long time ago
  7. XANAX [Concomitant]
     Dosage: started long time ago
  8. QUAMATEL [Concomitant]
     Dosage: UNK
     Dates: start: 2001
  9. METFORMIN HYDROCHLORIDE [Concomitant]
     Dosage: started 3 - 4 years ago
  10. DIAPREL [Concomitant]
     Dosage: started 5 years ago
  11. SPIRIVA [Concomitant]
     Dosage: started 3 or 4 years ago

REACTIONS (5)
  - Hypersensitivity [Recovered/Resolved]
  - Swollen tongue [Recovered/Resolved]
  - Dyspnoea [Recovered/Resolved]
  - Swelling [Recovered/Resolved]
  - Dizziness [Recovered/Resolved]
